FAERS Safety Report 8582232-4 (Version None)
Quarter: 2012Q2

REPORT INFORMATION
  Report Type: 
  Country: None (occurrence: None)
  Receive Date: 20120423
  Receipt Date: 20090901
  Transmission Date: 20120825
  Serious: Yes (Death, Hospitalization, Other)
  Sender: FDA-Public Use
  Company Number: PHEH2009US09299

PATIENT
  Age: 73 Year
  Sex: Female
  Weight: 80.3 kg

DRUGS (16)
  1. DANAZOL [Concomitant]
  2. THYROID TAB [Concomitant]
  3. SENOKOT-S (DOCUSATE SODIUM, SENNA, SENNA ALEXANDRINA) [Concomitant]
  4. PRAVACHOL [Concomitant]
  5. PREVACID [Concomitant]
  6. PREDNISONE TAB [Concomitant]
  7. CALCIUM CARBONATE [Concomitant]
  8. VITAMIN D [Concomitant]
  9. FISH OIL (FISH OIL) [Concomitant]
  10. ACYCLOVIR [Concomitant]
  11. EXJADE [Suspect]
     Indication: IRON OVERLOAD
     Dosage: 1500 MG, QD, ORAL
     Route: 048
     Dates: start: 20090330, end: 20090721
  12. DIFLUCAN [Concomitant]
  13. AVELOX [Concomitant]
  14. OXYCODONE HCL [Concomitant]
  15. MULTIVITAMIN AND MINERAL SUPPLEMENT (MINERALS NOS, VITAMINS NOS) [Concomitant]
  16. DONNATAL [Concomitant]

REACTIONS (15)
  - UNRESPONSIVE TO STIMULI [None]
  - LIVER DISORDER [None]
  - INFECTION [None]
  - MULTI-ORGAN FAILURE [None]
  - NERVOUS SYSTEM DISORDER [None]
  - BLOOD CHLORIDE INCREASED [None]
  - SERUM FERRITIN INCREASED [None]
  - HEPATIC FAILURE [None]
  - PANCYTOPENIA [None]
  - BLOOD SODIUM INCREASED [None]
  - BLOOD POTASSIUM INCREASED [None]
  - RESPIRATORY DISORDER [None]
  - NEOPLASM MALIGNANT [None]
  - RENAL FAILURE [None]
  - BLOOD MAGNESIUM INCREASED [None]
